FAERS Safety Report 6937646-2 (Version None)
Quarter: 2010Q3

REPORT INFORMATION
  Report Type: 
  Country: None (occurrence: None)
  Receive Date: 20100820
  Receipt Date: 20100820
  Transmission Date: 20110219
  Serious: Yes (Death)
  Sender: FDA-Public Use
  Company Number: None

PATIENT
  Sex: Female

DRUGS (2)
  1. TARCEVA [Suspect]
     Dosage: 1 TABLET DAILY BY MOUTH
     Route: 048
  2. LOVENOX [Suspect]
     Dosage: 100MG DAILY SUBCUTANEOUS
     Route: 058

REACTIONS (1)
  - DEATH [None]
